FAERS Safety Report 6470886-8 (Version None)
Quarter: 2009Q4

REPORT INFORMATION
  Report Type: 
  Country: None (occurrence: None)
  Receive Date: 20091203
  Receipt Date: 20080201
  Transmission Date: 20100525
  Serious: Yes (Death, Other)
  Sender: FDA-Public Use
  Company Number: IT-ELI_LILLY_AND_COMPANY-IT200801002429

PATIENT
  Sex: Male

DRUGS (8)
  1. XIGRIS [Suspect]
     Indication: SEPTIC SHOCK
     Dosage: 24MCG/KG
     Route: 042
     Dates: start: 20080110, end: 20080111
  2. GENTAMICIN [Concomitant]
     Dosage: UNK, UNKNOWN
     Route: 065
  3. DOPAMINE HCL [Concomitant]
     Dosage: UNK, UNKNOWN
     Route: 065
  4. NORADRENALINE [Concomitant]
     Dosage: UNK, UNKNOWN
     Route: 065
  5. TAZOCIN [Concomitant]
     Dosage: UNK, UNKNOWN
     Route: 065
  6. NEXIUM [Concomitant]
     Dosage: UNK, UNKNOWN
     Route: 065
  7. ENOXAPARIN SODIUM [Concomitant]
     Dosage: UNK, UNKNOWN
     Route: 065
  8. DEFLAMON [Concomitant]
     Dosage: UNK, UNKNOWN
     Route: 065

REACTIONS (4)
  - DEATH [None]
  - EPISTAXIS [None]
  - PANCREATITIS HAEMORRHAGIC [None]
  - PANCREATITIS NECROTISING [None]
